FAERS Safety Report 6240185-8 (Version None)
Quarter: 2009Q2

REPORT INFORMATION
  Report Type: 
  Country: None (occurrence: None)
  Receive Date: 20090618
  Receipt Date: 20090618
  Transmission Date: 20091009
  Serious: Yes (Other)
  Sender: FDA-Public Use
  Company Number: None

PATIENT
  Age: 38 Year
  Sex: Female
  Weight: 79.3795 kg

DRUGS (4)
  1. SYMBICORT [Suspect]
     Indication: ALLERGY TEST
     Dosage: 2 PUFFS INHALED ONCE ONLY INHAL; 1 SPRAY ON SKIN ONCE ONLY TOP
     Route: 055
     Dates: start: 20090505, end: 20090505
  2. SYMBICORT [Suspect]
     Indication: ASTHMA
     Dosage: 2 PUFFS INHALED ONCE ONLY INHAL; 1 SPRAY ON SKIN ONCE ONLY TOP
     Route: 055
     Dates: start: 20090505, end: 20090505
  3. SYMBICORT [Suspect]
     Indication: ALLERGY TEST
     Dosage: 2 PUFFS INHALED ONCE ONLY INHAL; 1 SPRAY ON SKIN ONCE ONLY TOP
     Route: 055
     Dates: start: 20090615, end: 20090615
  4. SYMBICORT [Suspect]
     Indication: ASTHMA
     Dosage: 2 PUFFS INHALED ONCE ONLY INHAL; 1 SPRAY ON SKIN ONCE ONLY TOP
     Route: 055
     Dates: start: 20090615, end: 20090615

REACTIONS (2)
  - DRUG HYPERSENSITIVITY [None]
  - LIP PAIN [None]
